FAERS Safety Report 6647577-3 (Version None)
Quarter: 2010Q1

REPORT INFORMATION
  Report Type: 
  Country: None (occurrence: None)
  Receive Date: 20100323
  Receipt Date: 20100323
  Transmission Date: 20100710
  Serious: Yes (Life-Threatening, Hospitalization)
  Sender: FDA-Public Use
  Company Number: None

PATIENT
  Age: 61 Year
  Sex: Male
  Weight: 117 kg

DRUGS (3)
  1. SIMVASTATIN [Suspect]
     Indication: DIABETES MELLITUS
     Dosage: 40 MG EVERYDAY PO
     Route: 048
     Dates: start: 20020628, end: 20100127
  2. SIMVASTATIN [Suspect]
     Indication: HYPERLIPIDAEMIA
     Dosage: 40 MG EVERYDAY PO
     Route: 048
     Dates: start: 20020628, end: 20100127
  3. NIACIN [Suspect]
     Indication: HYPERLIPIDAEMIA
     Dosage: 1000 MG BID PO
     Route: 048
     Dates: start: 20030908, end: 20100127

REACTIONS (11)
  - BACK PAIN [None]
  - CHROMATURIA [None]
  - CONSTIPATION [None]
  - GASTROENTERITIS VIRAL [None]
  - HAEMODIALYSIS [None]
  - NAUSEA [None]
  - PAIN IN EXTREMITY [None]
  - RENAL FAILURE ACUTE [None]
  - RHABDOMYOLYSIS [None]
  - URINE OUTPUT DECREASED [None]
  - VOMITING [None]
